FAERS Safety Report 9408855 (Version 2)
Quarter: 2013Q3

REPORT INFORMATION
  Report Type: Spontaneous
  Country: JP (occurrence: JP)
  Receive Date: 20130719
  Receipt Date: 20130802
  Transmission Date: 20140515
  Serious: Yes (Other)
  Sender: FDA-Public Use
  Company Number: JP-ASTRAZENECA-2013SE47060

PATIENT
  Age: 7684 Day
  Sex: Female
  Weight: 48 kg

DRUGS (17)
  1. SEROQUEL [Suspect]
     Indication: SCHIZOPHRENIA
     Route: 048
     Dates: start: 20130507, end: 20130507
  2. SEROQUEL [Suspect]
     Indication: SCHIZOPHRENIA
     Route: 048
     Dates: start: 20130508, end: 20130513
  3. SEROQUEL [Suspect]
     Indication: SCHIZOPHRENIA
     Route: 048
     Dates: start: 20130514, end: 20130514
  4. WYPAX [Suspect]
     Indication: SCHIZOPHRENIA
     Route: 048
     Dates: start: 20130422, end: 20130425
  5. RISPERIDONE [Suspect]
     Indication: SCHIZOPHRENIA
     Route: 048
     Dates: start: 20130422, end: 20130425
  6. RISPERIDONE [Suspect]
     Indication: SCHIZOPHRENIA
     Route: 048
     Dates: start: 20130426, end: 20130506
  7. ZYPREXA [Suspect]
     Indication: SCHIZOPHRENIA
     Route: 048
     Dates: start: 20130426, end: 20130506
  8. BENZALIN [Suspect]
     Indication: SCHIZOPHRENIA
     Route: 048
     Dates: start: 20130422, end: 20130506
  9. BENZALIN [Suspect]
     Indication: SCHIZOPHRENIA
     Route: 048
     Dates: start: 20130514
  10. TASMOLIN [Suspect]
     Indication: SCHIZOPHRENIA
     Route: 048
     Dates: start: 20130426, end: 20130506
  11. TASMOLIN [Suspect]
     Indication: SCHIZOPHRENIA
     Route: 048
     Dates: start: 20130509, end: 20130513
  12. TASMOLIN [Suspect]
     Indication: SCHIZOPHRENIA
     Route: 048
     Dates: start: 20130514
  13. SERENACE [Suspect]
     Indication: SCHIZOPHRENIA
     Route: 048
     Dates: start: 20130507, end: 20130507
  14. SERENACE [Suspect]
     Indication: SCHIZOPHRENIA
     Route: 048
     Dates: start: 20130508, end: 20130513
  15. SERENACE [Suspect]
     Indication: SCHIZOPHRENIA
     Route: 048
     Dates: start: 20130514, end: 20130514
  16. SERENACE [Suspect]
     Indication: SCHIZOPHRENIA
     Route: 048
     Dates: start: 20130515
  17. HIBERNA [Suspect]
     Indication: SCHIZOPHRENIA
     Route: 048
     Dates: start: 20130514

REACTIONS (3)
  - Platelet count increased [Recovered/Resolved]
  - Anaemia [Not Recovered/Not Resolved]
  - Hepatic function abnormal [Recovered/Resolved]
